FAERS Safety Report 8822974 (Version 1)
Quarter: 2012Q4

REPORT INFORMATION
  Report Type: Report from Study
  Country: US (occurrence: US)
  Receive Date: 20121003
  Receipt Date: 20121003
  Transmission Date: 20130627
  Serious: Yes (Death, Life-Threatening, Hospitalization, Other)
  Sender: FDA-Public Use
  Company Number: US-JNJFOC-20110801771

PATIENT
  Age: 55 Year
  Sex: Male
  Weight: 91.1 kg

DRUGS (11)
  1. USTEKINUMAB [Suspect]
     Indication: SARCOIDOSIS
     Route: 058
     Dates: start: 20110222
  2. USTEKINUMAB [Suspect]
     Indication: SARCOIDOSIS
     Route: 058
     Dates: start: 20101203
  3. ALDARA [Concomitant]
     Indication: SKIN PAPILLOMA
     Route: 061
     Dates: start: 20110608
  4. PREDNISONE [Concomitant]
     Indication: COLITIS ULCERATIVE
     Route: 048
     Dates: start: 20110222, end: 20110629
  5. PREDNISONE [Concomitant]
     Indication: COLITIS ULCERATIVE
     Route: 048
     Dates: end: 20110221
  6. PREDNISONE [Concomitant]
     Indication: COLITIS ULCERATIVE
     Route: 048
     Dates: start: 20110630
  7. PREDNISONE [Concomitant]
     Indication: SARCOIDOSIS
     Route: 048
     Dates: end: 20110221
  8. PREDNISONE [Concomitant]
     Indication: SARCOIDOSIS
     Route: 048
     Dates: start: 20110630
  9. PREDNISONE [Concomitant]
     Indication: SARCOIDOSIS
     Route: 048
     Dates: start: 20110222, end: 20110629
  10. XANAX [Concomitant]
     Indication: ANXIETY
     Route: 048
     Dates: start: 20110630
  11. MYCOPHENOLATE [Concomitant]
     Indication: SARCOIDOSIS
     Route: 048
     Dates: start: 201106

REACTIONS (4)
  - Acute respiratory failure [Fatal]
  - Pneumonia [Not Recovered/Not Resolved]
  - Atrial fibrillation [Not Recovered/Not Resolved]
  - Pulseless electrical activity [Not Recovered/Not Resolved]
